FAERS Safety Report 5295310-2 (Version None)
Quarter: 2007Q2

REPORT INFORMATION
  Report Type: 
  Country: None (occurrence: None)
  Receive Date: 20070406
  Receipt Date: 20070326
  Transmission Date: 20071010
  Serious: Yes (Hospitalization)
  Sender: FDA-Public Use
  Company Number: 2006BI015983

PATIENT
  Age: 75 Year
  Sex: Female

DRUGS (18)
  1. AVONEX [Suspect]
     Indication: MULTIPLE SCLEROSIS
     Dosage: 30 UG; QW; IM
     Route: 030
     Dates: start: 19991101, end: 20030801
  2. AVONEX [Suspect]
     Indication: MULTIPLE SCLEROSIS
     Dosage: 30 UG; QW; IM
     Route: 030
     Dates: start: 20030801
  3. LIPITOR [Concomitant]
  4. CARTIA XT [Concomitant]
  5. DIOVAN [Concomitant]
  6. CELEBREX [Concomitant]
  7. NEURONTIN [Concomitant]
  8. FOSAMAX [Concomitant]
  9. SANCTURA [Concomitant]
  10. PROVIGIL [Concomitant]
  11. TRAZODONE HCL [Concomitant]
  12. FLUOXETINE [Concomitant]
  13. DESMOPRESSIN [Concomitant]
  14. PROTONIX [Concomitant]
  15. ZONALON [Concomitant]
  16. VIT E [Concomitant]
  17. SELENIUM SULFIDE [Concomitant]
  18. DEXAMETHASONE 0.5MG TAB [Concomitant]

REACTIONS (6)
  - COMPRESSION FRACTURE [None]
  - OSTEOPOROSIS [None]
  - SCOLIOSIS [None]
  - SPINAL CORD COMPRESSION [None]
  - SPINAL FRACTURE [None]
  - SPINAL OSTEOARTHRITIS [None]
